FAERS Safety Report 7792377-4 (Version None)
Quarter: 2011Q4

REPORT INFORMATION
  Report Type: 
  Country: None (occurrence: None)
  Receive Date: 20111003
  Receipt Date: 20110913
  Transmission Date: 20120403
  Serious: No
  Sender: FDA-Public Use
  Company Number: US-ROXANE LABORATORIES, INC.-2011-RO-01262RO

PATIENT
  Age: 59 Year
  Sex: Male

DRUGS (9)
  1. MORPHINE [Suspect]
     Indication: BACK PAIN
     Route: 048
  2. ULTRAM [Concomitant]
     Indication: BACK PAIN
     Route: 048
  3. LASIX [Concomitant]
     Dosage: 20 MG
  4. MELOXICAM [Concomitant]
     Indication: BACK PAIN
     Dosage: 15 MG
     Route: 048
  5. NEURONTIN [Concomitant]
     Indication: BACK PAIN
     Dosage: 300 MG
     Route: 048
  6. COREG [Concomitant]
     Indication: ATRIAL FIBRILLATION
     Route: 048
  7. COUMADIN [Concomitant]
     Indication: TRANSIENT ISCHAEMIC ATTACK
     Dosage: 6 MG
     Route: 048
  8. LISINOPRIL [Concomitant]
     Indication: HYPERTENSION
     Dosage: 40 MG
     Route: 048
  9. LEVOTHYROXINE [Concomitant]
     Indication: HYPOTHYROIDISM
     Dosage: 25 MG
     Route: 048

REACTIONS (2)
  - DRUG INEFFECTIVE [None]
  - TENSION [None]
